FAERS Safety Report 13556661 (Version 1)
Quarter: 2017Q2

REPORT INFORMATION
  Report Type: Spontaneous
  Country: US (occurrence: US)
  Receive Date: 20170517
  Receipt Date: 20170517
  Transmission Date: 20170830
  Serious: No
  Sender: FDA-Public Use
  Company Number: US-SA-2017SA055704

PATIENT
  Age: 62 Year
  Sex: Male

DRUGS (6)
  1. TOUJEO [Suspect]
     Active Substance: INSULIN GLARGINE
     Indication: TYPE 2 DIABETES MELLITUS
     Dosage: DOSE: 8 UNITS QAM AND 27 UNITS HS.
     Route: 065
     Dates: start: 20170117
  2. TOUJEO [Suspect]
     Active Substance: INSULIN GLARGINE
     Indication: TYPE 2 DIABETES MELLITUS
     Dosage: DOSE: 8 UNITS QAM AND 29 UNITS HS.
     Route: 065
     Dates: start: 2017
  3. HUMALOG [Concomitant]
     Active Substance: INSULIN LISPRO
  4. SOLOSTAR [Suspect]
     Active Substance: DEVICE
     Indication: TYPE 2 DIABETES MELLITUS
     Dosage: 8 UNITS QAM AND 29 UNITS HS,INCREASED HIS EVENING DOSE RECENTLY FROM 27 UNITS TO 29 UNITS
     Dates: start: 2017
  5. AGGRENOX [Concomitant]
     Active Substance: ASPIRIN\DIPYRIDAMOLE
     Indication: THROMBOSIS PROPHYLAXIS
  6. SOLOSTAR [Suspect]
     Active Substance: DEVICE
     Indication: TYPE 2 DIABETES MELLITUS
     Dates: start: 20170117

REACTIONS (4)
  - Injection site haemorrhage [Not Recovered/Not Resolved]
  - Device use issue [Unknown]
  - Glycosylated haemoglobin increased [Not Recovered/Not Resolved]
  - Product use issue [Unknown]

NARRATIVE: CASE EVENT DATE: 2017
